FAERS Safety Report 10473038 (Version 5)
Quarter: 2015Q4

REPORT INFORMATION
  Report Type: Report from Study
  Country: US (occurrence: US)
  Receive Date: 20140924
  Receipt Date: 20151009
  Transmission Date: 20160304
  Serious: Yes (Hospitalization)
  Sender: FDA-Public Use
  Company Number: US-SA-2014SA111100

PATIENT
  Age: 38 Year
  Sex: Female
  Weight: 108 kg

DRUGS (1)
  1. AUBAGIO [Suspect]
     Active Substance: TERIFLUNOMIDE
     Indication: MULTIPLE SCLEROSIS
     Route: 048
     Dates: start: 20140628

REACTIONS (13)
  - Fatigue [Unknown]
  - Diarrhoea [Recovered/Resolved]
  - Stress [Unknown]
  - Asthma [Unknown]
  - Localised intraabdominal fluid collection [Unknown]
  - Dehydration [Unknown]
  - Alopecia [Recovering/Resolving]
  - Ovarian cyst ruptured [Recovering/Resolving]
  - Memory impairment [Unknown]
  - Dyspnoea exertional [Unknown]
  - Menstruation irregular [Unknown]
  - Anxiety [Unknown]
  - Depression [Unknown]

NARRATIVE: CASE EVENT DATE: 201406
